FAERS Safety Report 8436094-6 (Version None)
Quarter: 2012Q2

REPORT INFORMATION
  Report Type: 
  Country: None (occurrence: None)
  Receive Date: 20120614
  Receipt Date: 20120607
  Transmission Date: 20120825
  Serious: Yes (Hospitalization)
  Sender: FDA-Public Use
  Company Number: FR-ROCHE-1077311

PATIENT
  Sex: Male
  Weight: 57 kg

DRUGS (2)
  1. ROFERON-A [Suspect]
     Indication: RENAL CELL CARCINOMA
     Dosage: 9 MIU, QD, LAST DOSE ON 11-SEP-2009
     Route: 058
     Dates: start: 20090325, end: 20090911
  2. AVASTIN [Suspect]
     Indication: RENAL CELL CARCINOMA
     Dosage: LAST DOSE ON 11-SEP-2009
     Route: 042
     Dates: start: 20090325, end: 20090911

REACTIONS (1)
  - INTESTINAL OBSTRUCTION [None]
